FAERS Safety Report 11195158 (Version 1)
Quarter: 2015Q2

REPORT INFORMATION
  Report Type: Spontaneous
  Country: US (occurrence: None)
  Receive Date: 20150615
  Receipt Date: 20150615
  Transmission Date: 20150821
  Serious: Yes (Other)
  Sender: FDA-Public Use
  Company Number: FK201502673

PATIENT
  Age: 66 Year
  Sex: Female

DRUGS (5)
  1. AMLODIPINE [Concomitant]
     Active Substance: AMLODIPINE BESYLATE
  2. PRAVASTATIN [Concomitant]
     Active Substance: PRAVASTATIN\PRAVASTATIN SODIUM
  3. METOPROLOL [Concomitant]
     Active Substance: METOPROLOL
  4. CLONIDINE. [Concomitant]
     Active Substance: CLONIDINE
  5. HYDRALAZINE INJECTION (MANUFACTURER UNKNOWN) (HYDRALAZINE HYDROCHLORIDE) (HYDRALAZINE HYDROCHLORIDE) [Suspect]
     Active Substance: HYDRALAZINE HYDROCHLORIDE
     Indication: PRODUCT USED FOR UNKNOWN INDICATION

REACTIONS (2)
  - Glomerulonephritis rapidly progressive [None]
  - Anti-neutrophil cytoplasmic antibody positive vasculitis [None]
